FAERS Safety Report 19928849 (Version 1)
Quarter: 2021Q4

REPORT INFORMATION
  Report Type: Spontaneous
  Country: JP (occurrence: JP)
  Receive Date: 20211007
  Receipt Date: 20211007
  Transmission Date: 20220304
  Serious: Yes (Death, Hospitalization)
  Sender: FDA-Public Use
  Company Number: JP-EISAI-202106968_LEN-HCC_P_1

PATIENT
  Age: 66 Year
  Sex: Male

DRUGS (2)
  1. LENVATINIB [Suspect]
     Active Substance: LENVATINIB
     Indication: Hepatocellular carcinoma
     Route: 048
  2. LENVATINIB [Suspect]
     Active Substance: LENVATINIB
     Dosage: 12 MG, 5 DAYS ON/2 DAYS OFF
     Route: 048

REACTIONS (3)
  - Incision site abscess [Not Recovered/Not Resolved]
  - Post procedural bile leak [Not Recovered/Not Resolved]
  - Hepatic failure [Fatal]
